FAERS Safety Report 24253449 (Version 1)
Quarter: 2024Q3

REPORT INFORMATION
  Report Type: Spontaneous
  Country: JP (occurrence: JP)
  Receive Date: 20240827
  Receipt Date: 20240827
  Transmission Date: 20241017
  Serious: Yes (Life-Threatening, Hospitalization)
  Sender: ROCHE
  Company Number: None

PATIENT
  Age: 62 Year
  Sex: Male

DRUGS (11)
  1. MYCOPHENOLATE MOFETIL [Suspect]
     Active Substance: MYCOPHENOLATE MOFETIL
     Indication: Prophylaxis against transplant rejection
     Dosage: ON POD 35, MYCOPHENOLATE MOFETIL WAS CHANGED TO 1 G/D ORALLY
     Route: 048
  2. MYCOPHENOLATE MOFETIL [Suspect]
     Active Substance: MYCOPHENOLATE MOFETIL
     Dosage: VIA ENTEROSTOMY AT 1 G/D
     Route: 065
  3. METHYLPREDNISOLONE [Suspect]
     Active Substance: METHYLPREDNISOLONE
     Indication: Prophylaxis against transplant rejection
     Dosage: FROM POSTOPERATIVE DAYS (POD) 17 TO 32, TAPERING FROM 665 MG/D TO 20 MG/D.
     Route: 042
  4. METHYLPREDNISOLONE [Suspect]
     Active Substance: METHYLPREDNISOLONE
     Dosage: FROM POSTOPERATIVE DAYS (POD) 17 TO 32, TAPERING FROM 665 MG/D TO 20 MG/D.
     Route: 042
  5. METHYLPREDNISOLONE [Suspect]
     Active Substance: METHYLPREDNISOLONE
     Dosage: FROM POSTOPERATIVE DAYS (POD) 17 TO 32, TAPERING FROM 665 MG/D TO 20 MG/D.
     Route: 042
  6. PREDNISOLONE [Suspect]
     Active Substance: PREDNISOLONE
     Indication: Prophylaxis against transplant rejection
     Route: 048
  7. PREDNISOLONE [Suspect]
     Active Substance: PREDNISOLONE
     Dosage: TAPERED GRADUALLY FROM 20 MG/D
     Route: 048
  8. TACROLIMUS [Suspect]
     Active Substance: TACROLIMUS
     Indication: Prophylaxis against transplant rejection
     Dosage: ON POD 32, TACROLIMUS WAS CHANGED TO ORAL ADMINISTRATION WITH A TARGET TROUGH CONCENTRATION OF 10-12
     Route: 048
  9. TACROLIMUS [Suspect]
     Active Substance: TACROLIMUS
     Dosage: TARGET CONCENTRATION OF 15-18 NG/ML
     Route: 042
  10. MICAFUNGIN [Concomitant]
     Active Substance: MICAFUNGIN SODIUM
     Indication: Antifungal treatment
     Route: 048
  11. MICAFUNGIN [Concomitant]
     Active Substance: MICAFUNGIN SODIUM

REACTIONS (9)
  - Septic shock [Recovering/Resolving]
  - Acidosis [Recovering/Resolving]
  - Urinary tract infection [Recovering/Resolving]
  - Klebsiella infection [Recovering/Resolving]
  - Atrial fibrillation [Recovered/Resolved]
  - Cardio-respiratory arrest [Recovered/Resolved]
  - Spinal compression fracture [Unknown]
  - Osteomyelitis [Recovering/Resolving]
  - Renal impairment [Recovering/Resolving]
